FAERS Safety Report 6837663-7 (Version None)
Quarter: 2010Q3

REPORT INFORMATION
  Report Type: 
  Country: None (occurrence: None)
  Receive Date: 20100713
  Receipt Date: 20070518
  Transmission Date: 20110219
  Serious: No
  Sender: FDA-Public Use
  Company Number: US-PFIZER INC-2007041104

PATIENT
  Sex: Female

DRUGS (5)
  1. CHANTIX [Suspect]
     Indication: SMOKING CESSATION THERAPY
     Route: 048
     Dates: start: 20070514
  2. VYTORIN [Concomitant]
  3. DIOVANE [Concomitant]
  4. MONTELUKAST SODIUM [Concomitant]
  5. ANALGESICS [Concomitant]

REACTIONS (5)
  - DRUG INEFFECTIVE [None]
  - FATIGUE [None]
  - HEADACHE [None]
  - NAUSEA [None]
  - SLEEP DISORDER [None]
